FAERS Safety Report 5932381-1 (Version None)
Quarter: 2008Q4

REPORT INFORMATION
  Report Type: 
  Country: None (occurrence: None)
  Receive Date: 20081027
  Receipt Date: 20081027
  Transmission Date: 20090506
  Serious: Yes (Hospitalization)
  Sender: FDA-Public Use
  Company Number: None

PATIENT
  Age: 65 Year
  Sex: Female
  Weight: 70.7611 kg

DRUGS (2)
  1. SALINE LAXATIVE FLEET [Suspect]
     Indication: HYSTERECTOMY
     Dosage: 1 1/2 OZ TWICE
     Dates: start: 20081005, end: 20081005
  2. SALINE LAXATIVE FLEET [Suspect]
     Indication: PREOPERATIVE CARE
     Dosage: 1 1/2 OZ TWICE
     Dates: start: 20081005, end: 20081005

REACTIONS (5)
  - CONVULSION [None]
  - DIARRHOEA [None]
  - HYPERSENSITIVITY [None]
  - RENAL FAILURE ACUTE [None]
  - VOMITING [None]
